FAERS Safety Report 8815847 (Version 1)
Quarter: 2012Q4

REPORT INFORMATION
  Report Type: Report from Study
  Country: US (occurrence: US)
  Receive Date: 20120928
  Receipt Date: 20120928
  Transmission Date: 20130627
  Serious: Yes (Hospitalization)
  Sender: FDA-Public Use
  Company Number: US-MERCK-1209USA011624

PATIENT
  Age: 56 Year
  Sex: Female
  Weight: 64.5 kg

DRUGS (2)
  1. DECADRON [Suspect]
     Dosage: UNK
     Route: 042
     Dates: start: 201207
  2. NERATINIB [Suspect]
     Indication: BREAST CANCER METASTATIC
     Dosage: 240 mg, qd
     Route: 048
     Dates: start: 20120731

REACTIONS (3)
  - Confusional state [Unknown]
  - Faecal incontinence [Unknown]
  - Headache [Unknown]
